FAERS Safety Report 6303853-5 (Version None)
Quarter: 2009Q3

REPORT INFORMATION
  Report Type: 
  Country: None (occurrence: None)
  Receive Date: 20090807
  Receipt Date: 20090807
  Transmission Date: 20100115
  Serious: Yes (Hospitalization)
  Sender: FDA-Public Use
  Company Number: None

PATIENT
  Age: 60 Year
  Sex: Male

DRUGS (2)
  1. PRAZSOIN HCL [Suspect]
     Indication: NIGHTMARE
     Dosage: 15 MG, HS, PO
     Route: 048
     Dates: start: 20090219, end: 20090509
  2. PRAZSOIN HCL [Suspect]
     Indication: POST-TRAUMATIC STRESS DISORDER
     Dosage: 15 MG, HS, PO
     Route: 048
     Dates: start: 20090219, end: 20090509

REACTIONS (2)
  - DIZZINESS [None]
  - SYNCOPE [None]
